FAERS Safety Report 6581002-6 (Version None)
Quarter: 2010Q1

REPORT INFORMATION
  Report Type: 
  Country: None (occurrence: None)
  Receive Date: 20100215
  Receipt Date: 20100206
  Transmission Date: 20100710
  Serious: Yes (Hospitalization)
  Sender: FDA-Public Use
  Company Number: US-AMGEN-QUU391350

PATIENT
  Sex: Female

DRUGS (3)
  1. ENBREL [Suspect]
     Indication: RHEUMATOID ARTHRITIS
     Route: 058
     Dates: start: 20080401
  2. LEFLUNOMIDE [Concomitant]
     Dates: start: 20080801
  3. HYDROXYCHLOROQUINE SULFATE [Concomitant]
     Dates: start: 20091203

REACTIONS (6)
  - CHILLS [None]
  - FACET JOINT SYNDROME [None]
  - MENISCUS LESION [None]
  - PYREXIA [None]
  - RHEUMATOID ARTHRITIS [None]
  - SYNOVITIS [None]
